FAERS Safety Report 11267597 (Version 1)
Quarter: 2015Q3

REPORT INFORMATION
  Report Type: Spontaneous
  Country: US (occurrence: US)
  Receive Date: 20150713
  Receipt Date: 20150713
  Transmission Date: 20151125
  Serious: No
  Sender: FDA-Public Use
  Company Number: US-GLAXOSMITHKLINE-US2015097920

PATIENT
  Age: 84 Year
  Sex: Male

DRUGS (7)
  1. ROSUVASTATIN [Concomitant]
     Active Substance: ROSUVASTATIN
  2. LIMBREL [Concomitant]
     Active Substance: FLAVOCOXID
  3. HYDROCHLOROTHIAZIDE. [Concomitant]
     Active Substance: HYDROCHLOROTHIAZIDE
  4. DETROL [Concomitant]
     Active Substance: TOLTERODINE TARTRATE
  5. VERAPAMIL [Concomitant]
     Active Substance: VERAPAMIL HYDROCHLORIDE
  6. BREO ELLIPTA [Suspect]
     Active Substance: FLUTICASONE FUROATE\VILANTEROL TRIFENATATE
     Indication: COUGH
     Dosage: 1 PUFF(S), 1D
     Route: 055
     Dates: start: 20150617
  7. BREO ELLIPTA [Suspect]
     Active Substance: FLUTICASONE FUROATE\VILANTEROL TRIFENATATE
     Indication: WHEEZING

REACTIONS (2)
  - Oral discomfort [Not Recovered/Not Resolved]
  - Dry mouth [Not Recovered/Not Resolved]

NARRATIVE: CASE EVENT DATE: 20150617
